FAERS Safety Report 4616731-4 (Version None)
Quarter: 2005Q1

REPORT INFORMATION
  Report Type: 
  Country: None (occurrence: None)
  Receive Date: 20050321
  Receipt Date: 20050305
  Transmission Date: 20050727
  Serious: Yes (Hospitalization)
  Sender: FDA-Public Use
  Company Number: 2005SE01492

PATIENT
  Age: 32 Year
  Sex: Male

DRUGS (2)
  1. SPIROCORT [Suspect]
     Dates: start: 20050303, end: 20050303
  2. ALBUTEROL [Suspect]
     Dates: start: 20050303, end: 20050303

REACTIONS (2)
  - ACCIDENTAL EXPOSURE [None]
  - URTICARIA [None]
